FAERS Safety Report 21480338 (Version 2)
Quarter: 2022Q4

REPORT INFORMATION
  Report Type: Spontaneous
  Country: FR (occurrence: FR)
  Receive Date: 20221019
  Receipt Date: 20221024
  Transmission Date: 20230112
  Serious: Yes (Hospitalization, Other)
  Sender: FDA-Public Use
  Company Number: FR-MLMSERVICE-20221004-3833347-1

PATIENT
  Age: 50 Year
  Sex: Female

DRUGS (6)
  1. TACROLIMUS [Suspect]
     Active Substance: TACROLIMUS
     Indication: Immunosuppression
     Dosage: UNK
     Dates: start: 2014
  2. RITUXIMAB [Suspect]
     Active Substance: RITUXIMAB
     Indication: Immunosuppression
     Dosage: UNK
     Dates: start: 201409, end: 2014
  3. PREDNISOLONE [Suspect]
     Active Substance: PREDNISOLONE
     Indication: Immunosuppressant drug therapy
     Dosage: UNK
     Dates: start: 2014
  4. THYMOGLOBULIN [Suspect]
     Active Substance: LAPINE T-LYMPHOCYTE IMMUNE GLOBULIN
     Indication: Immunosuppression
     Dosage: UNK
     Dates: start: 201409, end: 2014
  5. MYCOPHENOLATE MOFETIL [Suspect]
     Active Substance: MYCOPHENOLATE MOFETIL
     Indication: Immunosuppressant drug therapy
     Dosage: UNK
     Dates: start: 2014, end: 201412
  6. AZATHIOPRINE [Concomitant]
     Active Substance: AZATHIOPRINE
     Indication: Immunosuppressant drug therapy
     Dosage: UNK
     Dates: start: 201412

REACTIONS (9)
  - Arthritis reactive [Recovered/Resolved]
  - Erythema nodosum [Recovered/Resolved]
  - Ascites [Recovered/Resolved]
  - Enterocolitis [Recovered/Resolved]
  - Splenic abscess [Recovered/Resolved]
  - Bacteraemia [Recovered/Resolved]
  - Campylobacter infection [Recovered/Resolved]
  - Hepatic infection bacterial [Recovered/Resolved]
  - Viral diarrhoea [Unknown]

NARRATIVE: CASE EVENT DATE: 20140101
